FAERS Safety Report 10189944 (Version 2)
Quarter: 2015Q1

REPORT INFORMATION
  Report Type: Spontaneous
  Country: DK (occurrence: DK)
  Receive Date: 20140522
  Receipt Date: 20150316
  Transmission Date: 20150720
  Serious: Yes (Hospitalization, Other)
  Sender: FDA-Public Use
  Company Number: PHHY2014DK060281

PATIENT
  Age: 71 Year
  Sex: Female

DRUGS (2)
  1. METHOTREXATE (METHOTREXATE SODIUM) [Suspect]
     Active Substance: METHOTREXATE SODIUM
     Indication: PSORIASIS
     Dosage: (WEEKLY DOSE OF 6 X 2.5 MG)
     Route: 065
     Dates: end: 20140330
  2. METHOTREXATE (METHOTREXATE SODIUM) [Suspect]
     Active Substance: METHOTREXATE SODIUM
     Dosage: (WEEKLY DOSE OF 4 X 2.5 MG )
     Route: 065

REACTIONS (3)
  - Alanine aminotransferase increased [Recovered/Resolved with Sequelae]
  - Hepatitis [Unknown]
  - Fall [Unknown]

NARRATIVE: CASE EVENT DATE: 20140330
